FAERS Safety Report 14606392 (Version 3)
Quarter: 2018Q2

REPORT INFORMATION
  Report Type: Report from Study
  Country: None (occurrence: US)
  Receive Date: 20180307
  Receipt Date: 20180613
  Transmission Date: 20180711
  Serious: Yes (Hospitalization, Other)
  Sender: FDA-Public Use
  Company Number: US-ABBVIE-18K-163-2275802-00

PATIENT
  Sex: Male

DRUGS (1)
  1. HUMIRA [Suspect]
     Active Substance: ADALIMUMAB
     Indication: RHEUMATOID ARTHRITIS
     Route: 058

REACTIONS (6)
  - Respiratory tract infection viral [Unknown]
  - Appendicitis perforated [Unknown]
  - Chronic obstructive pulmonary disease [Unknown]
  - Neoplasm of appendix [Unknown]
  - Appendicitis [Unknown]
  - Thyroid cancer [Unknown]
